FAERS Safety Report 10085766 (Version 1)
Quarter: 2014Q2

REPORT INFORMATION
  Report Type: Spontaneous
  Country: AU (occurrence: None)
  Receive Date: 20140416
  Receipt Date: 20140416
  Transmission Date: 20141212
  Serious: Yes (Other)
  Sender: FDA-Public Use
  Company Number: 2014AP002563

PATIENT
  Sex: Female

DRUGS (4)
  1. CIPROFLOXACIN [Suspect]
     Indication: OTITIS EXTERNA
  2. TAZOCIN [Suspect]
     Indication: OTITIS EXTERNA
  3. CIPROFLOXACIN HYDROCHLORIDE) EAR DROPS [Concomitant]
  4. INSULIN (INSULIN) [Concomitant]

REACTIONS (3)
  - Neutropenia [None]
  - Nausea [None]
  - Vomiting [None]
